FAERS Safety Report 16784518 (Version 7)
Quarter: 2019Q4

REPORT INFORMATION
  Report Type: Report from Study
  Country: US (occurrence: US)
  Receive Date: 20190909
  Receipt Date: 20191218
  Transmission Date: 20200122
  Serious: Yes (Hospitalization, Other)
  Sender: FDA-Public Use
  Company Number: PHEH2019US036640

PATIENT
  Age: 67 Year
  Sex: Female

DRUGS (2)
  1. MAYZENT [Suspect]
     Active Substance: SIPONIMOD
     Indication: MULTIPLE SCLEROSIS
     Dosage: 2 MG, QD
     Route: 048
     Dates: start: 20190721
  2. MAYZENT [Suspect]
     Active Substance: SIPONIMOD
     Dosage: 2 MG, QD
     Route: 048
     Dates: end: 20191012

REACTIONS (9)
  - Cardiomyopathy acute [Unknown]
  - Pleural effusion [Unknown]
  - Malaise [Unknown]
  - Concomitant disease aggravated [Recovering/Resolving]
  - Decreased appetite [Not Recovered/Not Resolved]
  - Atrial fibrillation [Unknown]
  - Cerebellar ataxia [Recovering/Resolving]
  - Anxiety [Not Recovered/Not Resolved]
  - Dyspnoea [Not Recovered/Not Resolved]

NARRATIVE: CASE EVENT DATE: 20190726
